FAERS Safety Report 13879993 (Version 1)
Quarter: 2017Q3

REPORT INFORMATION
  Report Type: Spontaneous
  Country: US (occurrence: US)
  Receive Date: 20170818
  Receipt Date: 20170818
  Transmission Date: 20171127
  Serious: No
  Sender: FDA-Public Use
  Company Number: US-ASTELLAS-2016US036640

PATIENT

DRUGS (1)
  1. AMBISOME [Suspect]
     Active Substance: AMPHOTERICIN B
     Indication: BLADDER IRRIGATION
     Dosage: 0.05 MG/ML (ALSO REPORTED AS 0.5 MG/ML), THRICE DAILY
     Route: 065

REACTIONS (1)
  - Off label use [Unknown]
